FAERS Safety Report 24721998 (Version 1)
Quarter: 2024Q4

REPORT INFORMATION
  Report Type: Spontaneous
  Country: US (occurrence: None)
  Receive Date: 20241210
  Receipt Date: 20241210
  Transmission Date: 20250115
  Serious: Yes (Hospitalization)
  Sender: Public
  Company Number: None

PATIENT
  Age: 69 Year
  Sex: Female
  Weight: 101 kg

DRUGS (8)
  1. CELECOXIB [Suspect]
     Active Substance: CELECOXIB
     Dosage: FREQUENCY : TWICE A DAY;?
     Route: 048
  2. MELOXICAM [Suspect]
     Active Substance: MELOXICAM
     Dosage: FREQUENCY : DAILY;?
     Route: 048
  3. NAPROXEN [Suspect]
     Active Substance: NAPROXEN
     Dates: start: 20241110
  4. NORCO [Suspect]
     Active Substance: ACETAMINOPHEN\HYDROCODONE BITARTRATE
  5. TYLENOL [Suspect]
     Active Substance: ACETAMINOPHEN
  6. METHYLPREDNISOLONE SODIUM SUCCINATE [Suspect]
     Active Substance: METHYLPREDNISOLONE SODIUM SUCCINATE
  7. METHYLPREDNISOLONE [Suspect]
     Active Substance: METHYLPREDNISOLONE
  8. PREGABALIN [Suspect]
     Active Substance: PREGABALIN

REACTIONS (3)
  - Sciatica [None]
  - Duodenitis [None]
  - Duodenal ulcer [None]

NARRATIVE: CASE EVENT DATE: 20241207
